FAERS Safety Report 14633943 (Version 1)
Quarter: 2018Q1

REPORT INFORMATION
  Report Type: Spontaneous
  Country: US (occurrence: US)
  Receive Date: 20180314
  Receipt Date: 20180314
  Transmission Date: 20180509
  Serious: Yes (Hospitalization, Other)
  Sender: FDA-Public Use
  Company Number: US-RECORDATI RARE DISEASES INC.-US-R13005-18-00067

PATIENT
  Age: 61 Year
  Sex: Female

DRUGS (1)
  1. METHAMPHETAMINE [Suspect]
     Active Substance: METHAMPHETAMINE
     Indication: PRODUCT USED FOR UNKNOWN INDICATION
     Route: 065

REACTIONS (8)
  - Renal infarct [Unknown]
  - Colectomy total [Unknown]
  - Pneumatosis intestinalis [Unknown]
  - Colitis ischaemic [Unknown]
  - Portal venous gas [Unknown]
  - Small intestinal resection [Unknown]
  - Hepatic infarction [Unknown]
  - Intestinal ischaemia [Unknown]
